FAERS Safety Report 21748207 (Version 2)
Quarter: 2023Q1

REPORT INFORMATION
  Report Type: Spontaneous
  Country: US (occurrence: US)
  Receive Date: 20221219
  Receipt Date: 20230111
  Transmission Date: 20230417
  Serious: Yes (Other)
  Sender: FDA-Public Use
  Company Number: US-PFIZER INC-202201378231

PATIENT
  Age: 79 Year
  Sex: Female

DRUGS (1)
  1. XALKORI [Suspect]
     Active Substance: CRIZOTINIB
     Indication: Neuroendocrine carcinoma of the skin
     Dosage: 250 MG

REACTIONS (3)
  - Second primary malignancy [Unknown]
  - Malignant neoplasm of eye [Unknown]
  - Off label use [Unknown]

NARRATIVE: CASE EVENT DATE: 20060101
